FAERS Safety Report 5159936-9 (Version None)
Quarter: 2006Q4

REPORT INFORMATION
  Report Type: 
  Country: None (occurrence: None)
  Receive Date: 20061129
  Receipt Date: 20061117
  Transmission Date: 20070319
  Serious: Yes (Hospitalization)
  Sender: FDA-Public Use
  Company Number: PHRM2006FR03112

PATIENT
  Age: 58 Year
  Sex: Female

DRUGS (5)
  1. GLEEVEC [Suspect]
     Indication: ACUTE LYMPHOCYTIC LEUKAEMIA
     Dosage: 400 MG DAILY
     Route: 048
     Dates: start: 20061108, end: 20061101
  2. EVISTA [Concomitant]
     Dates: start: 20060501
  3. METHOTREXATE [Suspect]
     Route: 037
  4. CYTARABINE [Suspect]
  5. DEPO-MEDROL [Suspect]

REACTIONS (2)
  - BRAIN OEDEMA [None]
  - SUBDURAL HAEMATOMA [None]
